FAERS Safety Report 23475295 (Version 1)
Quarter: 2024Q1

REPORT INFORMATION
  Report Type: Report from Study
  Country: US (occurrence: US)
  Receive Date: 20240204
  Receipt Date: 20240204
  Transmission Date: 20240409
  Serious: No
  Sender: FDA-Public Use
  Company Number: US-EXELIXIS-CABO-22059171

PATIENT
  Age: 74 Year
  Sex: Female
  Weight: 102.49 kg

DRUGS (8)
  1. CABOMETYX [Suspect]
     Active Substance: CABOZANTINIB S-MALATE
     Indication: Renal cancer
     Dosage: 40 MG, QD
     Route: 048
     Dates: start: 20221122
  2. CABOMETYX [Suspect]
     Active Substance: CABOZANTINIB S-MALATE
     Dosage: 20 MG
  3. FAMOTIDINE [Concomitant]
     Active Substance: FAMOTIDINE
     Indication: Gastrooesophageal reflux disease
     Dosage: UNK
  4. OMEPRAZOLE [Concomitant]
     Active Substance: OMEPRAZOLE
     Dosage: UNK
  5. METOPROLOL SUCCINATE [Concomitant]
     Active Substance: METOPROLOL SUCCINATE
  6. XARELTO [Concomitant]
     Active Substance: RIVAROXABAN
  7. SYNTHROID [Concomitant]
     Active Substance: LEVOTHYROXINE SODIUM
  8. ROSUVASTATIN [Concomitant]
     Active Substance: ROSUVASTATIN

REACTIONS (15)
  - Flatulence [Unknown]
  - Feeling abnormal [Unknown]
  - Blister [Recovered/Resolved]
  - Skin fissures [Recovering/Resolving]
  - Pruritus [Unknown]
  - Blood pressure increased [Recovering/Resolving]
  - Fatigue [Unknown]
  - Dry skin [Recovering/Resolving]
  - Taste disorder [Unknown]
  - Muscle spasms [Recovered/Resolved]
  - Decreased appetite [Unknown]
  - Throat irritation [Unknown]
  - Tongue injury [Unknown]
  - Oral candidiasis [Unknown]
  - Tongue haemorrhage [Unknown]

NARRATIVE: CASE EVENT DATE: 20230201
